FAERS Safety Report 6232818-7 (Version None)
Quarter: 2009Q2

REPORT INFORMATION
  Report Type: 
  Country: None (occurrence: None)
  Receive Date: 20090612
  Receipt Date: 20090605
  Transmission Date: 20091009
  Serious: Yes (Other)
  Sender: FDA-Public Use
  Company Number: DSA_33797_2009

PATIENT
  Sex: Female

DRUGS (1)
  1. ATIVAN [Suspect]
     Indication: NERVOUS SYSTEM DISORDER
     Dosage: (DF), (0.5 MG TID)
     Dates: end: 20070101

REACTIONS (2)
  - APPARENT DEATH [None]
  - DRUG WITHDRAWAL SYNDROME [None]
